FAERS Safety Report 9312595 (Version 15)
Quarter: 2013Q4

REPORT INFORMATION
  Report Type: Spontaneous
  Country: US (occurrence: US)
  Receive Date: 20130528
  Receipt Date: 20131202
  Transmission Date: 20140711
  Serious: Yes (Death, Hospitalization)
  Sender: FDA-Public Use
  Company Number: US-GLAXOSMITHKLINE-A1024588A

PATIENT
  Age: 58 Year
  Sex: Female

DRUGS (4)
  1. FLOLAN [Suspect]
     Indication: COR PULMONALE CHRONIC
     Dosage: 12NGKM CONTINUOUS
     Route: 042
     Dates: start: 20130510
  2. REVATIO [Concomitant]
  3. COUMADIN [Concomitant]
  4. CIALIS [Concomitant]

REACTIONS (16)
  - Death [Fatal]
  - Flushing [Unknown]
  - Diarrhoea [Unknown]
  - Fluid retention [Unknown]
  - Catheter site haemorrhage [Unknown]
  - Nervousness [Unknown]
  - Joint swelling [Unknown]
  - Anxiety [Unknown]
  - Drug administration error [Unknown]
  - Constipation [Unknown]
  - Weight decreased [Unknown]
  - Application site irritation [Unknown]
  - Device related infection [Unknown]
  - Infusion site swelling [Unknown]
  - Infusion site erythema [Unknown]
  - Dyspnoea [Unknown]
